FAERS Safety Report 8544139-8 (Version None)
Quarter: 2012Q3

REPORT INFORMATION
  Report Type: 
  Country: None (occurrence: None)
  Receive Date: 20120727
  Receipt Date: 20120717
  Transmission Date: 20120928
  Serious: Yes (Hospitalization)
  Sender: FDA-Public Use
  Company Number: DE-SANOFI-AVENTIS-2012SA024294

PATIENT
  Age: 51 Year
  Sex: Male
  Weight: 113 kg

DRUGS (10)
  1. CABAZITAXEL [Suspect]
     Route: 042
     Dates: start: 20120329, end: 20120329
  2. PANTOPRAZOLE [Concomitant]
     Route: 048
     Dates: start: 20120127
  3. LUTEINIZING HORMONE-RELEASING HORMONE [Concomitant]
     Route: 057
     Dates: start: 20101001
  4. AMIODARONE HCL [Concomitant]
     Route: 048
     Dates: start: 20111101, end: 20120322
  5. PREDNISONE [Suspect]
     Route: 048
     Dates: start: 20120119, end: 20120404
  6. ENOXAPARIN SODIUM [Concomitant]
     Route: 058
     Dates: start: 20120106
  7. BISOPROLOL FUMARATE [Concomitant]
     Route: 048
     Dates: start: 20120323
  8. PRAVASTATIN [Concomitant]
     Route: 048
     Dates: start: 20120203
  9. CABAZITAXEL [Suspect]
     Route: 042
     Dates: start: 20120119, end: 20120119
  10. SIMVASTATIN [Concomitant]
     Route: 048
     Dates: start: 20090501, end: 20120202

REACTIONS (4)
  - HYPOTENSION [None]
  - GASTRITIS [None]
  - LEUKOPENIA [None]
  - NAUSEA [None]
